FAERS Safety Report 10156793 (Version 1)
Quarter: 2014Q2

REPORT INFORMATION
  Report Type: Spontaneous
  Country: VI (occurrence: None)
  Receive Date: 20140506
  Receipt Date: 20140506
  Transmission Date: 20141212
  Serious: Yes (Other)
  Sender: FDA-Public Use
  Company Number: None

PATIENT
  Age: 09 Year
  Sex: Male
  Weight: 23 kg

DRUGS (2)
  1. SINGULAIR 5MG MERCK [Suspect]
     Indication: ASTHMA
     Dosage: 1 TABLET
     Route: 048
  2. SINGULAIR 5MG MERCK [Suspect]
     Indication: RHINITIS ALLERGIC
     Dosage: 1 TABLET
     Route: 048

REACTIONS (4)
  - Insomnia [None]
  - Anxiety [None]
  - Depression [None]
  - Abnormal behaviour [None]
